FAERS Safety Report 21315171 (Version 6)
Quarter: 2024Q2

REPORT INFORMATION
  Report Type: Report from Study
  Country: CN (occurrence: CN)
  Receive Date: 20220909
  Receipt Date: 20240521
  Transmission Date: 20240716
  Serious: Yes (Hospitalization)
  Sender: FDA-Public Use
  Company Number: CN-PFIZER INC-PV202200055035

PATIENT
  Age: 59 Year
  Sex: Male
  Weight: 58 kg

DRUGS (19)
  1. PACLITAXEL [Suspect]
     Active Substance: PACLITAXEL
     Indication: Squamous cell carcinoma of lung
     Dosage: 309 MG, EVERY 3 WEEKS
     Route: 041
     Dates: start: 20210811, end: 20210811
  2. PACLITAXEL [Suspect]
     Active Substance: PACLITAXEL
     Dosage: 225 MG, EVERY 3 WEEKS
     Route: 041
     Dates: start: 20210902, end: 20210902
  3. PACLITAXEL [Suspect]
     Active Substance: PACLITAXEL
     Dosage: 225 MG, EVERY 3 WEEKS
     Route: 041
     Dates: start: 20210925, end: 20210925
  4. PACLITAXEL [Suspect]
     Active Substance: PACLITAXEL
     Dosage: 225 MG, EVERY 3 WEEKS
     Route: 041
     Dates: start: 20211014, end: 20211014
  5. INVESTIGATIONAL PRODUCT [Suspect]
     Active Substance: INVESTIGATIONAL PRODUCT
     Indication: Squamous cell carcinoma of lung
     Dosage: UNK, EVERY 3 WEEKS, C1D1
     Route: 042
     Dates: start: 20210810, end: 20210810
  6. INVESTIGATIONAL PRODUCT [Suspect]
     Active Substance: INVESTIGATIONAL PRODUCT
     Dosage: UNK, C2D1
     Route: 042
     Dates: start: 20210901, end: 20210901
  7. INVESTIGATIONAL PRODUCT [Suspect]
     Active Substance: INVESTIGATIONAL PRODUCT
     Dosage: UNK, C3D1
     Route: 042
     Dates: start: 20210924, end: 20210924
  8. INVESTIGATIONAL PRODUCT [Suspect]
     Active Substance: INVESTIGATIONAL PRODUCT
     Dosage: UNK, C4D1
     Route: 042
     Dates: start: 20211013, end: 20211013
  9. INVESTIGATIONAL PRODUCT [Suspect]
     Active Substance: INVESTIGATIONAL PRODUCT
     Dosage: UNK
     Route: 042
     Dates: start: 20210810, end: 20220810
  10. INVESTIGATIONAL PRODUCT [Suspect]
     Active Substance: INVESTIGATIONAL PRODUCT
     Dosage: UNK
     Route: 042
     Dates: start: 20210901, end: 20220323
  11. INVESTIGATIONAL PRODUCT [Suspect]
     Active Substance: INVESTIGATIONAL PRODUCT
     Dosage: UNK
     Route: 042
     Dates: start: 20220519, end: 20220519
  12. INVESTIGATIONAL PRODUCT [Suspect]
     Active Substance: INVESTIGATIONAL PRODUCT
     Dosage: UNK
     Route: 042
     Dates: start: 20220607, end: 20221206
  13. INVESTIGATIONAL PRODUCT [Suspect]
     Active Substance: INVESTIGATIONAL PRODUCT
     Dosage: UNK
     Route: 042
     Dates: start: 20230110, end: 20230110
  14. INVESTIGATIONAL PRODUCT [Suspect]
     Active Substance: INVESTIGATIONAL PRODUCT
     Dosage: UNK
     Route: 042
     Dates: start: 20230203, end: 20230630
  15. INVESTIGATIONAL PRODUCT [Suspect]
     Active Substance: INVESTIGATIONAL PRODUCT
     Dosage: UNK
     Route: 042
     Dates: start: 20230712, end: 20230824
  16. CARBOPLATIN [Suspect]
     Active Substance: CARBOPLATIN
     Indication: Squamous cell carcinoma of lung
     Dosage: 550 MG, EVERY 3 WEEKS
     Route: 042
     Dates: start: 20210811, end: 20210811
  17. CARBOPLATIN [Suspect]
     Active Substance: CARBOPLATIN
     Dosage: 500 MG, EVERY 3 WEEKS
     Route: 042
     Dates: start: 20210902, end: 20210902
  18. CARBOPLATIN [Suspect]
     Active Substance: CARBOPLATIN
     Dosage: 450 MG, EVERY 3 WEEKS
     Route: 042
     Dates: start: 20210925, end: 20210925
  19. CARBOPLATIN [Suspect]
     Active Substance: CARBOPLATIN
     Dosage: 450 MG, EVERY 3 WEEKS
     Route: 042
     Dates: start: 20211014, end: 20211014

REACTIONS (1)
  - Immune-mediated lung disease [Recovering/Resolving]

NARRATIVE: CASE EVENT DATE: 20211101
